FAERS Safety Report 4582272-6 (Version None)
Quarter: 2005Q1

REPORT INFORMATION
  Report Type: 
  Country: None (occurrence: None)
  Receive Date: 20050211
  Receipt Date: 20050211
  Transmission Date: 20050727
  Serious: No
  Sender: FDA-Public Use
  Company Number: None

PATIENT
  Age: 44 Year
  Sex: Male
  Weight: 104.3273 kg

DRUGS (1)
  1. TIMOLOL 0.5 % FALCON-PHARMACEUTICALS [Suspect]
     Indication: GLAUCOMA
     Dosage: ONE - DROP 2 TIMES A DAY BOTH EYES
     Dates: start: 20041206, end: 20050120

REACTIONS (5)
  - APPLICATION SITE BRUISING [None]
  - APPLICATION SITE PAIN [None]
  - APPLICATION SITE REACTION [None]
  - EYE DISORDER [None]
  - VISION BLURRED [None]
